FAERS Safety Report 9110209 (Version 1)
Quarter: 2013Q1

REPORT INFORMATION
  Report Type: Spontaneous
  Country: AT (occurrence: AT)
  Receive Date: 20130222
  Receipt Date: 20130222
  Transmission Date: 20140127
  Serious: Yes (Life-Threatening)
  Sender: FDA-Public Use
  Company Number: AT-JNJFOC-20130204105

PATIENT
  Age: 32 Year
  Sex: Male

DRUGS (4)
  1. RISPERDAL [Suspect]
     Indication: PRODUCT USED FOR UNKNOWN INDICATION
     Dosage: DAILY DOSE: 2
     Route: 065
     Dates: start: 20120427, end: 20120504
  2. RISPERDAL [Suspect]
     Indication: PRODUCT USED FOR UNKNOWN INDICATION
     Dosage: DAILY DOSE: 5
     Route: 065
     Dates: start: 20120329, end: 20120426
  3. RISPERDAL [Suspect]
     Indication: PRODUCT USED FOR UNKNOWN INDICATION
     Dosage: DAILY DOSE: 4
     Route: 065
     Dates: start: 20120315, end: 20120328
  4. DOMINAL [Suspect]
     Indication: PRODUCT USED FOR UNKNOWN INDICATION
     Dosage: DAILY DOSE: 80
     Route: 065
     Dates: start: 20120322

REACTIONS (2)
  - Pulmonary embolism [Recovered/Resolved]
  - Suicidal ideation [Unknown]
